FAERS Safety Report 11876442 (Version 7)
Quarter: 2016Q3

REPORT INFORMATION
  Report Type: Spontaneous
  Country: US (occurrence: US)
  Receive Date: 20151229
  Receipt Date: 20160718
  Transmission Date: 20161109
  Serious: Yes (Hospitalization)
  Sender: FDA-Public Use
  Company Number: US-PFIZER INC-2015447187

PATIENT
  Age: 81 Year
  Sex: Male

DRUGS (14)
  1. FUROSEMIDE. [Concomitant]
     Active Substance: FUROSEMIDE
     Dosage: 40 MG, 2X/DAY
     Route: 048
     Dates: start: 20151222
  2. PRADAXA [Concomitant]
     Active Substance: DABIGATRAN ETEXILATE MESYLATE
     Dosage: 150 MG, 2X/DAY
     Route: 048
  3. COMBIGAN [Concomitant]
     Active Substance: BRIMONIDINE TARTRATE\TIMOLOL MALEATE
     Dosage: 1 GTT, UNK (0.2-0 .5 % DROPS)
     Route: 047
  4. CARVEDILOL. [Concomitant]
     Active Substance: CARVEDILOL
     Dosage: 0.5 TABLET (12.5 MG), TWICE DAILY
     Route: 048
  5. TRAVATAN [Concomitant]
     Active Substance: TRAVOPROST
     Dosage: 1 GTT, UNK (0.004 % DROPS)
     Route: 047
  6. ALPHA CRS +CELLULAR VITALITY [Concomitant]
     Dosage: 1 DF, 2X/DAY
  7. INLYTA [Suspect]
     Active Substance: AXITINIB
     Dosage: 3 MG, 2X/DAY
     Route: 048
     Dates: start: 20151105, end: 20151207
  8. AZOPT [Concomitant]
     Active Substance: BRINZOLAMIDE
     Dosage: UNK, 2X/DAY (1 % DROPS, SUSPENSION)
     Route: 047
  9. PROTONIX [Concomitant]
     Active Substance: PANTOPRAZOLE SODIUM
     Dosage: 20 MG, DAILY AT BEDTIME
     Route: 048
  10. INLYTA [Suspect]
     Active Substance: AXITINIB
     Indication: METASTATIC RENAL CELL CARCINOMA
     Dosage: 3 MG, 2X/DAY (3 TABLETS OF 1 MG)
     Route: 048
     Dates: start: 20150908, end: 201512
  11. LEVOTHYROXINE. [Concomitant]
     Active Substance: LEVOTHYROXINE
     Indication: THYROID DISORDER
     Dosage: 125 UG, DAILY
     Route: 048
     Dates: start: 20151028
  12. MUGARD [Concomitant]
     Dosage: UNK, 5-6 TIMES A DAY AS NEEDED
     Route: 048
  13. AMIODARONE [Concomitant]
     Active Substance: AMIODARONE
     Dosage: 200 MG, DAILY
     Route: 048
  14. MAGNESIUM HYDROXIDE. [Concomitant]
     Active Substance: MAGNESIUM HYDROXIDE
     Dosage: 1 DF (400 MG (170 MG)), DAILY
     Route: 048

REACTIONS (12)
  - Asthenia [Recovered/Resolved]
  - Hypercalcaemia [Recovered/Resolved]
  - Oedema [Recovered/Resolved]
  - Peripheral swelling [Recovered/Resolved]
  - Weight decreased [Unknown]
  - Nausea [Unknown]
  - Metastatic renal cell carcinoma [Unknown]
  - Arthralgia [Recovered/Resolved]
  - Diarrhoea [Recovered/Resolved]
  - Disease progression [Unknown]
  - Vomiting [Recovered/Resolved]
  - Balance disorder [Unknown]

NARRATIVE: CASE EVENT DATE: 20150922
